FAERS Safety Report 4511748-2 (Version None)
Quarter: 2004Q4

REPORT INFORMATION
  Report Type: 
  Country: None (occurrence: None)
  Receive Date: 20041123
  Receipt Date: 20041123
  Transmission Date: 20050328
  Serious: Yes (Other)
  Sender: FDA-Public Use
  Company Number: None

PATIENT
  Age: 59 Year
  Sex: Male
  Weight: 91.2 kg

DRUGS (19)
  1. TERAZOSIN HCL [Suspect]
  2. ATENOLOL [Concomitant]
  3. ALBUTEROL [Concomitant]
  4. METFORMIN HCL [Concomitant]
  5. TERAZOSIN HCL [Concomitant]
  6. LANCET, TECHLITE [Concomitant]
  7. ABSORBASE [Concomitant]
  8. ACCU-CHEK COMFORT CURVE-H TEST STRIP [Concomitant]
  9. ALENDRONATE SODIUM [Concomitant]
  10. DEXTROSE [Concomitant]
  11. FOSINOPRIL NA [Concomitant]
  12. OMEPRAZOLE [Concomitant]
  13. SIMVASTATIN [Concomitant]
  14. TAMSULOSIN HCL [Concomitant]
  15. HYDROMORPHONE HCL [Concomitant]
  16. TRAZODONE HCL [Concomitant]
  17. CITALOPRAM HYDROBROMIDE [Concomitant]
  18. DIVALPROEX SODIUM [Concomitant]
  19. GAUZE PAD [Concomitant]

REACTIONS (1)
  - DIZZINESS [None]
